FAERS Safety Report 12073704 (Version 1)
Quarter: 2016Q1

REPORT INFORMATION
  Report Type: Spontaneous
  Country: US (occurrence: US)
  Receive Date: 20160212
  Receipt Date: 20160212
  Transmission Date: 20160526
  Serious: Yes (Death)
  Sender: FDA-Public Use
  Company Number: US-PERRIGO-16US001316

PATIENT
  Age: 87 Year
  Sex: Female

DRUGS (3)
  1. NITROGLYCERIN RX 400 MCG/SPRAY 8A5 [Suspect]
     Active Substance: NITROGLYCERIN
     Indication: DRUG ADMINISTRATION ERROR
     Dosage: UNKNOWN, UNKNOWN
     Route: 065
  2. DILTIAZEM [Suspect]
     Active Substance: DILTIAZEM
     Indication: DRUG ADMINISTRATION ERROR
     Dosage: UNKNOWN, UNKNOWN
     Route: 065
  3. CARVEDILOL. [Suspect]
     Active Substance: CARVEDILOL
     Indication: DRUG ADMINISTRATION ERROR
     Dosage: UNKNOWN, UNKNOWN
     Route: 065

REACTIONS (1)
  - Death [Fatal]
